FAERS Safety Report 8494270-0 (Version None)
Quarter: 2012Q3

REPORT INFORMATION
  Report Type: 
  Country: None (occurrence: None)
  Receive Date: 20120709
  Receipt Date: 20120706
  Transmission Date: 20120928
  Serious: Yes (Other)
  Sender: FDA-Public Use
  Company Number: PHHY2012AU055415

PATIENT
  Sex: Female

DRUGS (15)
  1. ROSUVASTATIN [Concomitant]
     Dosage: 5 MG, UNK
     Route: 049
  2. CELESTONE [Concomitant]
     Route: 061
  3. CLOPIDOGREL [Concomitant]
     Dosage: 75 MG, UNK
     Route: 048
  4. MEBEVERINE [Concomitant]
     Dosage: 135 MG, UNK
     Route: 048
  5. ACETAMINOPHEN [Concomitant]
  6. MOMETASONE FUROATE [Concomitant]
  7. GLUCOSAMINE [Concomitant]
     Dosage: 1000 MG, UNK
     Route: 048
  8. REFRESH PLUS [Concomitant]
  9. POLARAMINE [Concomitant]
  10. ZOLEDRONOC ACID [Suspect]
     Dosage: 5 MG, UNK
     Route: 042
     Dates: start: 20110628
  11. EZETIMIBE [Concomitant]
     Dosage: 10 MG, UNK
     Route: 048
  12. LATANOPROST [Concomitant]
  13. ESTRADIOL [Concomitant]
  14. PANTOPRAZOLE [Concomitant]
  15. POLYETHYLENE GLYCOL [Concomitant]

REACTIONS (2)
  - INTESTINAL OBSTRUCTION [None]
  - VOLVULUS [None]
